FAERS Safety Report 21669919 (Version 1)
Quarter: 2022Q4

REPORT INFORMATION
  Report Type: Spontaneous
  Country: GR (occurrence: GR)
  Receive Date: 20221201
  Receipt Date: 20221201
  Transmission Date: 20230113
  Serious: Yes (Hospitalization)
  Sender: FDA-Public Use
  Company Number: GR-BAYER-2022A164575

PATIENT
  Age: 50 Year
  Sex: Female

DRUGS (1)
  1. CIPROFLOXACIN [Suspect]
     Active Substance: CIPROFLOXACIN
     Indication: Urinary tract infection
     Route: 048
     Dates: start: 20220922

REACTIONS (5)
  - Vertigo [None]
  - Dizziness [None]
  - Balance disorder [None]
  - Mobility decreased [None]
  - Fatigue [None]
